FAERS Safety Report 6156873-8 (Version None)
Quarter: 2009Q2

REPORT INFORMATION
  Report Type: 
  Country: None (occurrence: None)
  Receive Date: 20090416
  Receipt Date: 20090414
  Transmission Date: 20091009
  Serious: Yes (Hospitalization)
  Sender: FDA-Public Use
  Company Number: JP-BAYER-200911154BYL

PATIENT
  Age: 71 Year
  Sex: Male
  Weight: 55 kg

DRUGS (14)
  1. NEXAVAR [Suspect]
     Indication: RENAL CELL CARCINOMA STAGE IV
     Dosage: UNIT DOSE: 200 MG
     Route: 048
     Dates: start: 20080716, end: 20080810
  2. NEXAVAR [Suspect]
     Dosage: UNIT DOSE: 200 MG
     Route: 048
     Dates: start: 20080811, end: 20081101
  3. NEXAVAR [Suspect]
     Dosage: UNIT DOSE: 200 MG
     Route: 048
     Dates: start: 20081102, end: 20090410
  4. MEVALOTIN [Concomitant]
     Dosage: TOTAL DAILY DOSE: 5 MG
     Route: 048
  5. BASEN OD [Concomitant]
     Dosage: TOTAL DAILY DOSE: 0.6 MG
     Route: 048
  6. NELBIS [Concomitant]
     Dosage: TOTAL DAILY DOSE: 500 MG
     Route: 048
  7. AMARYL [Concomitant]
     Dosage: TOTAL DAILY DOSE: 1 MG
     Route: 048
  8. URALYT [Concomitant]
     Dosage: TOTAL DAILY DOSE: 6 DF
     Route: 048
  9. BIOFERMIN R [Concomitant]
     Dosage: TOTAL DAILY DOSE: 3 DF
     Route: 048
  10. THEO-DUR [Concomitant]
     Dosage: TOTAL DAILY DOSE: 200 MG
     Route: 048
  11. BISOLVON [Concomitant]
     Dosage: TOTAL DAILY DOSE: 12 MG
     Route: 048
  12. GASMOTIN [Concomitant]
     Dosage: TOTAL DAILY DOSE: 15 MG
     Route: 048
  13. SOLANTAL [Concomitant]
     Route: 048
  14. MYONAL [Concomitant]
     Route: 048

REACTIONS (3)
  - HEPATIC FUNCTION ABNORMAL [None]
  - MALAISE [None]
  - PALMAR-PLANTAR ERYTHRODYSAESTHESIA SYNDROME [None]
